FAERS Safety Report 18018846 (Version 2)
Quarter: 2021Q3

REPORT INFORMATION
  Report Type: Spontaneous
  Country: US (occurrence: US)
  Receive Date: 20200714
  Receipt Date: 20210712
  Transmission Date: 20211014
  Serious: Yes (Other)
  Sender: FDA-Public Use
  Company Number: US-GLAXOSMITHKLINE-US2020129416

PATIENT
  Sex: Male

DRUGS (15)
  1. ZANTAC [Suspect]
     Active Substance: RANITIDINE HYDROCHLORIDE
     Indication: HELICOBACTER INFECTION
  2. ZANTAC [Suspect]
     Active Substance: RANITIDINE HYDROCHLORIDE
     Indication: PRODUCT USED FOR UNKNOWN INDICATION
     Dosage: UNK
     Route: 065
  3. ZANTAC [Suspect]
     Active Substance: RANITIDINE HYDROCHLORIDE
     Indication: DYSPEPSIA
     Dosage: 150 MG, QD, HE TOOK IT AS NEEDED, WHICH WAS PRETTY MUCH EVERYDAY
     Route: 065
     Dates: start: 201602, end: 201706
  4. RANITIDINE CAPSULE [Suspect]
     Active Substance: RANITIDINE
     Indication: DYSPEPSIA
     Dosage: 150 MG, QD, HE TOOK IT AS NEEDED, WHICH WAS PRETTY MUCH EVERYDAY
     Route: 065
     Dates: start: 201602, end: 201706
  5. ZANTAC [Suspect]
     Active Substance: RANITIDINE HYDROCHLORIDE
     Indication: DYSPEPSIA
     Dosage: 150 MG, QD, HE TOOK IT AS NEEDED, WHICH WAS PRETTY MUCH EVERYDAY
     Route: 065
     Dates: start: 201602, end: 201706
  6. RANITIDINE. [Suspect]
     Active Substance: RANITIDINE
     Indication: DYSPEPSIA
     Dosage: 150 MG
     Route: 065
     Dates: start: 201602, end: 201706
  7. RANITIDINE. [Suspect]
     Active Substance: RANITIDINE
     Indication: DYSPEPSIA
     Dosage: 150 MG BOTH
     Route: 065
     Dates: start: 201602, end: 201706
  8. RANITIDINE CAPSULE [Suspect]
     Active Substance: RANITIDINE
     Indication: HELICOBACTER INFECTION
  9. RANITIDINE. [Suspect]
     Active Substance: RANITIDINE
     Indication: HELICOBACTER INFECTION
  10. ZANTAC [Suspect]
     Active Substance: RANITIDINE HYDROCHLORIDE
     Indication: PRODUCT USED FOR UNKNOWN INDICATION
     Dosage: UNK
     Route: 065
  11. RANITIDINE. [Suspect]
     Active Substance: RANITIDINE
     Indication: HELICOBACTER INFECTION
  12. ZANTAC [Suspect]
     Active Substance: RANITIDINE HYDROCHLORIDE
     Indication: HELICOBACTER INFECTION
  13. ZANTAC [Suspect]
     Active Substance: RANITIDINE HYDROCHLORIDE
     Indication: DYSPEPSIA
     Dosage: 150 MG, QD, HE TOOK IT AS NEEDED, WHICH WAS PRETTY MUCH EVERYDAY
     Route: 065
     Dates: start: 201602, end: 201706
  14. RANITIDINE. [Suspect]
     Active Substance: RANITIDINE
     Indication: HELICOBACTER INFECTION
  15. RANITIDINE. [Suspect]
     Active Substance: RANITIDINE
     Indication: DYSPEPSIA
     Dosage: 150 MG BOTH
     Route: 065
     Dates: start: 201602, end: 201706

REACTIONS (1)
  - Colorectal cancer [Unknown]
